FAERS Safety Report 5080397-2 (Version None)
Quarter: 2006Q3

REPORT INFORMATION
  Report Type: 
  Country: None (occurrence: None)
  Receive Date: 20060815
  Receipt Date: 20060809
  Transmission Date: 20061208
  Serious: Yes (Other)
  Sender: FDA-Public Use
  Company Number: CH-ROCHE-459105

PATIENT
  Age: 57 Year
  Sex: Male
  Weight: 83 kg

DRUGS (2)
  1. XENICAL [Suspect]
     Route: 048
     Dates: start: 20011015, end: 20030615
  2. SIFROL [Concomitant]
     Route: 048

REACTIONS (2)
  - BILIARY COLIC [None]
  - CHOLELITHIASIS [None]
